FAERS Safety Report 4505882-0 (Version None)
Quarter: 2004Q4

REPORT INFORMATION
  Report Type: 
  Country: None (occurrence: None)
  Receive Date: 20041119
  Receipt Date: 20041112
  Transmission Date: 20050328
  Serious: Yes (Death, Other)
  Sender: FDA-Public Use
  Company Number: IT-JNJFOC-20041103490

PATIENT

DRUGS (1)
  1. LEUSTATIN [Suspect]
     Dosage: 0.14 MG/KG DAILY X 5 DAY OR WEEKLY X 5 CYCLES
     Route: 042

REACTIONS (4)
  - ANAEMIA [None]
  - LUNG NEOPLASM MALIGNANT [None]
  - NEUTROPENIA [None]
  - THROMBOCYTOPENIA [None]
